FAERS Safety Report 9288328 (Version 1)
Quarter: 2013Q2

REPORT INFORMATION
  Report Type: Spontaneous
  Country: US (occurrence: None)
  Receive Date: 20130513
  Receipt Date: 20130513
  Transmission Date: 20140414
  Serious: Yes (Other)
  Sender: FDA-Public Use
  Company Number: None

PATIENT
  Age: 56 Year
  Sex: Male
  Weight: 112.49 kg

DRUGS (1)
  1. DILANTIN 100 MG 100 MG [Suspect]
     Indication: TRIGEMINAL NEURALGIA

REACTIONS (3)
  - Dizziness [None]
  - Hallucination [None]
  - Intercepted drug dispensing error [None]
